FAERS Safety Report 6705301-X (Version None)
Quarter: 2010Q2

REPORT INFORMATION
  Report Type: 
  Country: None (occurrence: None)
  Receive Date: 20100430
  Receipt Date: 20100426
  Transmission Date: 20101027
  Serious: Yes (Hospitalization)
  Sender: FDA-Public Use
  Company Number: SK-ROCHE-699295

PATIENT
  Sex: Female
  Weight: 59 kg

DRUGS (5)
  1. PEGINTERFERON ALFA-2A [Suspect]
     Indication: HEPATITIS
     Route: 058
     Dates: start: 20100226
  2. RIBAVIRIN [Suspect]
     Indication: HEPATITIS
     Dosage: FREQUENCY: 2-0-2 DAILY
     Route: 048
     Dates: start: 20100226
  3. ESSENTIALE [Concomitant]
     Indication: HEPATITIS
     Route: 048
     Dates: start: 20100226
  4. LAGOSA [Concomitant]
     Indication: HEPATITIS
     Route: 048
     Dates: start: 20100226
  5. SERLIFT [Concomitant]
     Indication: DEPRESSION
     Route: 048
     Dates: start: 20100226

REACTIONS (1)
  - CHOLELITHIASIS [None]
